FAERS Safety Report 6107809-7 (Version None)
Quarter: 2009Q1

REPORT INFORMATION
  Report Type: 
  Country: None (occurrence: None)
  Receive Date: 20090309
  Receipt Date: 20090304
  Transmission Date: 20090719
  Serious: Yes (Hospitalization)
  Sender: FDA-Public Use
  Company Number: B0563144A

PATIENT
  Age: 26 Year
  Sex: Female

DRUGS (3)
  1. AUGMENTIN '125' [Suspect]
     Indication: HYPERTHERMIA
     Dosage: 2G PER DAY
     Route: 042
     Dates: start: 20090112, end: 20090112
  2. CYTOTEC [Suspect]
     Route: 065
     Dates: start: 20090112, end: 20090112
  3. PERFALGAN [Suspect]
     Indication: HYPERTHERMIA
     Dosage: 1G PER DAY
     Route: 042
     Dates: start: 20090112, end: 20090112

REACTIONS (9)
  - ERYTHEMA [None]
  - FACE OEDEMA [None]
  - HYPERSENSITIVITY [None]
  - HYPOTENSION [None]
  - NAUSEA [None]
  - OEDEMA PERIPHERAL [None]
  - PRURITUS [None]
  - TRYPTASE INCREASED [None]
  - VOMITING [None]
